FAERS Safety Report 8302044-6 (Version None)
Quarter: 2012Q2

REPORT INFORMATION
  Report Type: 
  Country: None (occurrence: None)
  Receive Date: 20120420
  Receipt Date: 20120412
  Transmission Date: 20120825
  Serious: Yes (Hospitalization, Disabling, Other)
  Sender: FDA-Public Use
  Company Number: US-MERCK-1202USA02462

PATIENT
  Age: 78 Year
  Sex: Female

DRUGS (6)
  1. FOSAMAX [Suspect]
     Indication: OSTEOPOROSIS
     Route: 048
     Dates: start: 20010901
  2. ALENDRONATE SODIUM [Suspect]
     Indication: OSTEOPOROSIS
     Route: 048
     Dates: start: 20090601
  3. FOSAMAX [Suspect]
     Route: 048
     Dates: start: 20050601, end: 20080101
  4. FOSAMAX [Suspect]
     Route: 048
     Dates: start: 20050601, end: 20080101
  5. FOSAMAX [Suspect]
     Route: 048
     Dates: start: 20080301
  6. FOSAMAX [Suspect]
     Indication: OSTEOPENIA
     Route: 048
     Dates: start: 20010901

REACTIONS (25)
  - RECTOCELE [None]
  - ANAEMIA POSTOPERATIVE [None]
  - CONTUSION [None]
  - FRACTURED SACRUM [None]
  - CELLULITIS [None]
  - FEMUR FRACTURE [None]
  - GALLBLADDER DISORDER [None]
  - HAEMATOMA [None]
  - CYSTOCELE [None]
  - PAIN IN EXTREMITY [None]
  - ATRIAL FIBRILLATION [None]
  - BLADDER PROLAPSE [None]
  - HERPES ZOSTER [None]
  - PNEUMONIA [None]
  - CARDIAC FAILURE CONGESTIVE [None]
  - CEREBROVASCULAR ACCIDENT [None]
  - URINARY INCONTINENCE [None]
  - HYPERTONIC BLADDER [None]
  - CORONARY ARTERY DISEASE [None]
  - CATARACT [None]
  - FEMORAL NECK FRACTURE [None]
  - LOW TURNOVER OSTEOPATHY [None]
  - POLLAKIURIA [None]
  - HYPERTENSION [None]
  - OSTEOARTHRITIS [None]
